FAERS Safety Report 7623809-X (Version None)
Quarter: 2011Q3

REPORT INFORMATION
  Report Type: 
  Country: None (occurrence: None)
  Receive Date: 20110720
  Receipt Date: 20110705
  Transmission Date: 20111222
  Serious: Yes (Hospitalization)
  Sender: FDA-Public Use
  Company Number: CA-SANOFI-AVENTIS-2011SA044341

PATIENT
  Sex: Male
  Weight: 80 kg

DRUGS (11)
  1. THIAZIDES [Concomitant]
     Route: 065
  2. IRBESARTAN [Concomitant]
     Route: 065
  3. DRONEDARONE HCL [Suspect]
     Indication: ATRIAL FIBRILLATION
     Route: 048
     Dates: start: 20110227, end: 20110315
  4. ASPIRIN [Concomitant]
     Route: 065
  5. WARFARIN SODIUM [Concomitant]
     Route: 065
  6. GLUCOBAY [Concomitant]
  7. ATENOLOL [Concomitant]
     Route: 065
  8. METFORMIN HCL [Concomitant]
  9. GLYBURIDE [Concomitant]
  10. PERINDOPRIL ERBUMINE [Concomitant]
     Route: 065
  11. DIGOXIN [Concomitant]
     Route: 065

REACTIONS (2)
  - CARDIAC FAILURE [None]
  - PNEUMONIA BACTERIAL [None]
